FAERS Safety Report 5205235-6 (Version None)
Quarter: 2007Q1

REPORT INFORMATION
  Report Type: 
  Country: None (occurrence: None)
  Receive Date: 20070110
  Receipt Date: 20061229
  Transmission Date: 20070707
  Serious: Yes (Hospitalization, Disabling, Other)
  Sender: FDA-Public Use
  Company Number: US-PFIZER INC-2007001162

PATIENT
  Sex: Female
  Weight: 68 kg

DRUGS (2)
  1. BEXTRA [Suspect]
     Indication: BACK PAIN
     Dosage: TEXT:10 OR 20 MILLIGRAM
  2. BEXTRA [Suspect]
     Indication: ARTHRITIS

REACTIONS (5)
  - ANAEMIA [None]
  - DEPRESSION [None]
  - MITRAL VALVE PROLAPSE [None]
  - MYOCARDIAL INFARCTION [None]
  - SWELLING [None]
